FAERS Safety Report 8949404 (Version 1)
Quarter: 2012Q4

REPORT INFORMATION
  Report Type: 
  Country: US (occurrence: US)
  Receive Date: 20121206
  Receipt Date: 20121206
  Transmission Date: 20130627
  Serious: No
  Sender: FDA-Public Use
  Company Number: US-ASTRAZENECA-2012SE87938

PATIENT
  Age: 62 Year
  Sex: Male
  Weight: 88.5 kg

DRUGS (3)
  1. SYMBICORT [Suspect]
     Indication: MULTIPLE ALLERGIES
     Dosage: 80/4.5 MCG, TWO TIMES A DAY
     Route: 055
     Dates: start: 20121101, end: 20121118
  2. PRINZIDE [Suspect]
     Indication: HYPERTENSION
     Dosage: 10/12.5 MCG DAILY
     Route: 048
     Dates: start: 2010
  3. SYNTHROID [Concomitant]
     Indication: THYROID DISORDER
     Route: 048

REACTIONS (2)
  - Cough [Unknown]
  - Off label use [Not Recovered/Not Resolved]
